FAERS Safety Report 12076367 (Version 21)
Quarter: 2023Q1

REPORT INFORMATION
  Report Type: Spontaneous
  Country: GB (occurrence: GB)
  Receive Date: 20160215
  Receipt Date: 20230331
  Transmission Date: 20230417
  Serious: Yes (Other)
  Sender: FDA-Public Use
  Company Number: GB-BRISTOL-MYERS SQUIBB COMPANY-16861130

PATIENT

DRUGS (11)
  1. CETIRIZINE [Interacting]
     Active Substance: CETIRIZINE HYDROCHLORIDE
     Indication: Seasonal allergy
     Dosage: 1 DOSAGE FORM, PRN (AS NECESSARY)   ONCE A DAY (OCCASIONAL CETIRIZINE)
     Route: 048
  2. CETIRIZINE [Interacting]
     Active Substance: CETIRIZINE HYDROCHLORIDE
     Dosage: 1 MILLIGRAM, QID
     Route: 048
  3. LAMICTAL [Interacting]
     Active Substance: LAMOTRIGINE
     Indication: Bipolar disorder
     Dosage: 50 MILLIGRAM, 3 TIMES A DAY/ 150 MILLIGRAM DAILY
     Route: 048
  4. LAMICTAL [Interacting]
     Active Substance: LAMOTRIGINE
     Dosage: 50 MILLIGRAM, TID
     Route: 048
  5. ABILIFY [Interacting]
     Active Substance: ARIPIPRAZOLE
     Indication: Bipolar disorder
     Dosage: UNK
     Route: 048
  6. NEXPLANON [Interacting]
     Active Substance: ETONOGESTREL
     Indication: Contraception
     Dosage: 68 MILLIGRAM, DURING 1 TRIMESTER, (PL 00065/0161), IMPLANT FOR SUBDERMAL USE, SUBCUTANEOUS
     Route: 059
  7. NEXPLANON [Interacting]
     Active Substance: ETONOGESTREL
     Dosage: 68 MILLIGRAM
     Route: 059
  8. ARIPIPRAZOLE [Interacting]
     Active Substance: ARIPIPRAZOLE
     Indication: Bipolar disorder
     Dosage: UNK
     Route: 048
  9. LAMOTRIGINE [Interacting]
     Active Substance: LAMOTRIGINE
     Indication: Bipolar disorder
     Dosage: 50 MILLIGRAM, QD
     Route: 048
  10. LAMOTRIGINE [Interacting]
     Active Substance: LAMOTRIGINE
     Dosage: 50 MILLIGRAM, QD
     Route: 048
  11. ETONOGESTREL [Interacting]
     Active Substance: ETONOGESTREL
     Indication: Contraception
     Dosage: UNK
     Route: 065

REACTIONS (10)
  - Abortion spontaneous [Unknown]
  - Intermenstrual bleeding [Unknown]
  - Pregnancy with implant contraceptive [Unknown]
  - Drug interaction [Unknown]
  - Pregnancy [Unknown]
  - Unintended pregnancy [Unknown]
  - Pregnancy on contraceptive [Unknown]
  - Pregnancy with contraceptive device [Unknown]
  - Maternal exposure during pregnancy [Unknown]
  - Exposure during pregnancy [Unknown]
